FAERS Safety Report 19798966 (Version 1)
Quarter: 2021Q3

REPORT INFORMATION
  Report Type: Spontaneous
  Country: US (occurrence: US)
  Receive Date: 20210907
  Receipt Date: 20210907
  Transmission Date: 20211014
  Serious: Yes (Hospitalization)
  Sender: FDA-Public Use
  Company Number: None

PATIENT
  Age: 64 Year
  Sex: Male

DRUGS (12)
  1. LISINOPRIL. [Concomitant]
     Active Substance: LISINOPRIL
  2. DOCUSATE [Concomitant]
     Active Substance: DOCUSATE
  3. CARVEDIOLOL [Concomitant]
  4. KEYTUDA [Concomitant]
  5. EZETIMIBE. [Concomitant]
     Active Substance: EZETIMIBE
  6. INLYTA [Suspect]
     Active Substance: AXITINIB
     Indication: RENAL CANCER
     Route: 048
     Dates: start: 20210830, end: 20210831
  7. CLONIDINE. [Concomitant]
     Active Substance: CLONIDINE
  8. TAMSULOSIN [Concomitant]
     Active Substance: TAMSULOSIN
  9. FERROUS SULFATES [Concomitant]
  10. CALCIUM ACETATE. [Concomitant]
     Active Substance: CALCIUM ACETATE
  11. AMLODIPINE [Concomitant]
     Active Substance: AMLODIPINE BESYLATE
  12. VITAMIN D [Concomitant]
     Active Substance: VITAMIN D NOS

REACTIONS (1)
  - Pneumonia [None]

NARRATIVE: CASE EVENT DATE: 20210831
